FAERS Safety Report 4950197-X (Version None)
Quarter: 2006Q1

REPORT INFORMATION
  Report Type: 
  Country: None (occurrence: None)
  Receive Date: 20060316
  Receipt Date: 20060307
  Transmission Date: 20060701
  Serious: Yes (Other)
  Sender: FDA-Public Use
  Company Number: 2006032357

PATIENT
  Age: 68 Year
  Sex: Female

DRUGS (1)
  1. NICORETTE [Suspect]
     Indication: SMOKING CESSATION THERAPY
     Dosage: INHALATION
     Route: 055
     Dates: start: 20060101

REACTIONS (3)
  - CONDITION AGGRAVATED [None]
  - SUICIDAL IDEATION [None]
  - WEIGHT INCREASED [None]
